FAERS Safety Report 6966367-5 (Version None)
Quarter: 2010Q3

REPORT INFORMATION
  Report Type: 
  Country: None (occurrence: None)
  Receive Date: 20100903
  Receipt Date: 20100823
  Transmission Date: 20110219
  Serious: Yes (Hospitalization, Disabling, Other)
  Sender: FDA-Public Use
  Company Number: PHHY2010US55834

PATIENT
  Sex: Female

DRUGS (1)
  1. FANAPT [Suspect]
     Indication: BIPOLAR DISORDER
     Dosage: 1 MG, QD
     Route: 048
     Dates: start: 20100505, end: 20100509

REACTIONS (7)
  - ABDOMINAL PAIN [None]
  - CHEST DISCOMFORT [None]
  - CHEST PAIN [None]
  - CONFUSIONAL STATE [None]
  - HEADACHE [None]
  - NAUSEA [None]
  - RESTLESSNESS [None]
